FAERS Safety Report 4823594-0 (Version None)
Quarter: 2005Q4

REPORT INFORMATION
  Report Type: 
  Country: None (occurrence: None)
  Receive Date: 20051109
  Receipt Date: 20051101
  Transmission Date: 20060501
  Serious: Yes (Hospitalization)
  Sender: FDA-Public Use
  Company Number: US-AVENTIS-200519612GDDC

PATIENT
  Age: 74 Year
  Sex: Male

DRUGS (2)
  1. DOCETAXEL [Suspect]
     Indication: NON-SMALL CELL LUNG CANCER
     Route: 042
  2. CARBOPLATIN [Suspect]
     Indication: NON-SMALL CELL LUNG CANCER
     Dosage: DOSE: AUC 6

REACTIONS (3)
  - DEHYDRATION [None]
  - FEELING ABNORMAL [None]
  - NEUTROPENIA [None]
